FAERS Safety Report 15429350 (Version 1)
Quarter: 2018Q3

REPORT INFORMATION
  Report Type: Spontaneous
  Country: US (occurrence: US)
  Receive Date: 20180926
  Receipt Date: 20180926
  Transmission Date: 20181010
  Serious: Yes (Hospitalization, Other)
  Sender: FDA-Public Use
  Company Number: US-TORRENT-00006930

PATIENT
  Age: 19 Year
  Sex: Male

DRUGS (1)
  1. BUPROPION. [Suspect]
     Active Substance: BUPROPION
     Indication: PRODUCT USED FOR UNKNOWN INDICATION
     Dosage: UNKNOWN

REACTIONS (9)
  - Cardiac arrest [Unknown]
  - Medication residue present [Unknown]
  - Hypotension [Unknown]
  - Tachycardia [Unknown]
  - Respiratory failure [Unknown]
  - Intentional overdose [Unknown]
  - Electrocardiogram QRS complex prolonged [Unknown]
  - Status epilepticus [Unknown]
  - Electrocardiogram QT prolonged [Unknown]
